FAERS Safety Report 25431430 (Version 2)
Quarter: 2025Q4

REPORT INFORMATION
  Report Type: Other
  Country: EU (occurrence: EU)
  Receive Date: 20250613
  Receipt Date: 20251229
  Transmission Date: 20260117
  Serious: Yes (Life-Threatening, Hospitalization)
  Sender: STRIDES
  Company Number: None

PATIENT
  Age: 33 Year
  Sex: Male
  Weight: 72.4 kg

DRUGS (5)
  1. IBUPROFEN [Suspect]
     Active Substance: IBUPROFEN
     Indication: Poisoning deliberate
     Dosage: 5 DOSAGE FORM, 1 TOTAL
     Route: 048
     Dates: start: 20250509, end: 20250509
  2. TRAMADOL [Suspect]
     Active Substance: TRAMADOL
     Indication: Poisoning deliberate
     Dosage: 18 DOSAGE FORM, 1 TOTAL, 900 MILLIGRAM, 1 TOTAL
     Route: 048
     Dates: start: 20250509, end: 20250509
  3. ACETAMINOPHEN [Suspect]
     Active Substance: ACETAMINOPHEN
     Indication: Poisoning deliberate
     Dosage: 12 GRAM, 1 TOTAL
     Route: 048
     Dates: start: 20250509, end: 20250509
  4. ACETAMINOPHEN\OPIUM [Suspect]
     Active Substance: ACETAMINOPHEN\OPIUM
     Indication: Poisoning deliberate
     Dosage: 34 DOSAGE FORM, 1 TOTAL
     Route: 048
     Dates: start: 20250509, end: 20250509
  5. DESLORATADINE [Suspect]
     Active Substance: DESLORATADINE
     Indication: Poisoning deliberate
     Dosage: 15 DOSAGE FORM, 1 TOTAL
     Route: 048
     Dates: start: 20250509, end: 20250509

REACTIONS (4)
  - Poisoning deliberate [Recovered/Resolved]
  - Renal tubular necrosis [Recovered/Resolved]
  - Hepatitis acute [Unknown]
  - Acute hepatic failure [Recovered/Resolved]

NARRATIVE: CASE EVENT DATE: 20250509
